FAERS Safety Report 4718764-6 (Version None)
Quarter: 2005Q3

REPORT INFORMATION
  Report Type: 
  Country: None (occurrence: None)
  Receive Date: 20050719
  Receipt Date: 20050302
  Transmission Date: 20060218
  Serious: Yes (Other)
  Sender: FDA-Public Use
  Company Number: 2004237768US

PATIENT
  Sex: Female
  Weight: 77.1 kg

DRUGS (5)
  1. CELEBREX [Suspect]
     Indication: ILL-DEFINED DISORDER
     Dosage: ORAL
     Route: 048
  2. BEXTRA [Suspect]
     Indication: MENISCUS LESION
     Dosage: 20 MG (20 MG, 1 IN 1 D), ORAL
     Route: 048
     Dates: start: 20040604, end: 20040903
  3. ATORVASTATIN CALCIUM [Concomitant]
  4. HEPAGRISEVIT FORTE-N TABLET (CYANOCOBALAMIN, FOLIC ACID, PYRIDOXINE HY [Concomitant]
  5. NADOLOL [Concomitant]

REACTIONS (1)
  - RECTAL HAEMORRHAGE [None]
